FAERS Safety Report 14679041 (Version 1)
Quarter: 2018Q1

REPORT INFORMATION
  Report Type: Report from Study
  Country: BR (occurrence: BR)
  Receive Date: 20180326
  Receipt Date: 20180326
  Transmission Date: 20180509
  Serious: Yes (Hospitalization)
  Sender: FDA-Public Use
  Company Number: PHHY2018BR047764

PATIENT
  Sex: Female
  Weight: 102 kg

DRUGS (1)
  1. FORASEQ [Suspect]
     Active Substance: BUDESONIDE\FORMOTEROL FUMARATE
     Indication: ASTHMA
     Dosage: 1 DF (400 MG), Q12H
     Route: 065

REACTIONS (9)
  - Malaise [Unknown]
  - Dyspnoea [Unknown]
  - Wheezing [Unknown]
  - Memory impairment [Unknown]
  - Gait disturbance [Unknown]
  - Bronchitis [Unknown]
  - Arthropathy [Not Recovered/Not Resolved]
  - Catarrh [Unknown]
  - Product availability issue [Unknown]
